FAERS Safety Report 21850465 (Version 6)
Quarter: 2023Q2

REPORT INFORMATION
  Report Type: Report from Study
  Country: US (occurrence: US)
  Receive Date: 20230111
  Receipt Date: 20230530
  Transmission Date: 20230722
  Serious: No
  Sender: FDA-Public Use
  Company Number: US-002147023-NVSC2023US005988

PATIENT
  Age: 11 Year
  Sex: Female

DRUGS (1)
  1. ILARIS [Suspect]
     Active Substance: CANAKINUMAB
     Indication: Still^s disease
     Dosage: 150 MG, Q4W (OTHER)
     Route: 058
     Dates: start: 20200214

REACTIONS (3)
  - Gastroenteritis [Unknown]
  - Inappropriate schedule of product administration [Unknown]
  - Illness [Unknown]

NARRATIVE: CASE EVENT DATE: 20230324
